FAERS Safety Report 24589476 (Version 1)
Quarter: 2024Q4

REPORT INFORMATION
  Report Type: Spontaneous
  Country: IN (occurrence: IN)
  Receive Date: 20241107
  Receipt Date: 20241107
  Transmission Date: 20250114
  Serious: Yes (Death)
  Sender: MYLAN
  Company Number: IN-MYLANLABS-2024M1100472

PATIENT
  Age: 58 Year
  Sex: Female

DRUGS (2)
  1. SUNITINIB [Suspect]
     Active Substance: SUNITINIB
     Indication: Chromophobe renal cell carcinoma
     Dosage: UNK UNK, CYCLE, TWO CYCLES ADMINISTERED
     Route: 065
  2. SUNITINIB [Suspect]
     Active Substance: SUNITINIB
     Indication: Renal cell carcinoma

REACTIONS (1)
  - Drug ineffective [Fatal]
